FAERS Safety Report 14007826 (Version 2)
Quarter: 2018Q1

REPORT INFORMATION
  Report Type: Report from Study
  Country: JP (occurrence: JP)
  Receive Date: 20170925
  Receipt Date: 20180202
  Transmission Date: 20180508
  Serious: Yes (Other)
  Sender: FDA-Public Use
  Company Number: JP-TAIHO ONCOLOGY INC-JPTT160525

PATIENT
  Age: 52 Year
  Sex: Female
  Weight: 58 kg

DRUGS (3)
  1. LONSURF [Suspect]
     Active Substance: TIPIRACIL HYDROCHLORIDE\TRIFLURIDINE
     Indication: COLON CANCER METASTATIC
     Dosage: 55 MG X 2/DAY, ON DAYS 1-5 AND 8-12 OF EACH 28-DAY CYCLE, CYCLE 1
     Route: 048
     Dates: start: 20150227, end: 20150311
  2. LONSURF [Suspect]
     Active Substance: TIPIRACIL HYDROCHLORIDE\TRIFLURIDINE
     Indication: COLON CANCER METASTATIC
     Dosage: 55 MG X 2/DAY, ON DAYS 1-5 AND 8-12 OF EACH 28-DAY CYCLE, CYCLE 2
     Route: 048
     Dates: start: 20150327, end: 20150407
  3. LONSURF [Suspect]
     Active Substance: TIPIRACIL HYDROCHLORIDE\TRIFLURIDINE
     Indication: COLON CANCER METASTATIC
     Dosage: 45 MG X 2/DAY, ON DAYS 1-5 AND 8-12 OF EACH 28-DAY CYCLE, CYCLES 3-4
     Route: 048
     Dates: start: 20150508, end: 20150616

REACTIONS (4)
  - Malaise [Recovered/Resolved]
  - White blood cell count decreased [Recovered/Resolved]
  - Skin disorder [Recovered/Resolved]
  - Neutrophil count decreased [Recovered/Resolved]

NARRATIVE: CASE EVENT DATE: 20150313
